FAERS Safety Report 14556212 (Version 1)
Quarter: 2018Q1

REPORT INFORMATION
  Report Type: Report from Study
  Country: None (occurrence: US)
  Receive Date: 20180221
  Receipt Date: 20180221
  Transmission Date: 20180509
  Serious: Yes (Other)
  Sender: FDA-Public Use
  Company Number: US-ABBVIE-17K-163-2146538-00

PATIENT
  Sex: Male

DRUGS (2)
  1. HUMIRA [Suspect]
     Active Substance: ADALIMUMAB
     Route: 058
  2. HUMIRA [Suspect]
     Active Substance: ADALIMUMAB
     Indication: HIDRADENITIS
     Route: 058

REACTIONS (9)
  - Nephrolithiasis [Not Recovered/Not Resolved]
  - Hidradenitis [Not Recovered/Not Resolved]
  - Renal cyst [Not Recovered/Not Resolved]
  - Skin tightness [Unknown]
  - Pain [Unknown]
  - Drug ineffective [Unknown]
  - Dermal cyst [Recovered/Resolved with Sequelae]
  - Cyst [Not Recovered/Not Resolved]
  - Rash papular [Recovering/Resolving]
